FAERS Safety Report 4438713-8 (Version None)
Quarter: 2004Q3

REPORT INFORMATION
  Report Type: 
  Country: None (occurrence: None)
  Receive Date: 20040830
  Receipt Date: 20040830
  Transmission Date: 20050211
  Serious: Yes (Hospitalization, Disabling)
  Sender: FDA-Public Use
  Company Number: None

PATIENT
  Age: 60 Year
  Sex: Female
  Weight: 58 kg

DRUGS (2)
  1. CYCLOPHOSPHAMIDE [Suspect]
     Indication: BREAST CANCER
     Dosage: 600 MG/M2 Q2WEEK INTRAVENOUS
     Route: 042
     Dates: start: 20040623, end: 20040804
  2. DOXORUBICIN HCL [Concomitant]

REACTIONS (7)
  - BODY TEMPERATURE INCREASED [None]
  - BRONCHOSCOPY ABNORMAL [None]
  - DYSPNOEA [None]
  - ERYTHEMA [None]
  - PHARYNGOLARYNGEAL PAIN [None]
  - PLEURAL EFFUSION [None]
  - PULMONARY TOXICITY [None]
